FAERS Safety Report 5192500-4 (Version None)
Quarter: 2006Q4

REPORT INFORMATION
  Report Type: 
  Country: None (occurrence: None)
  Receive Date: 20061220
  Receipt Date: 20061205
  Transmission Date: 20070319
  Serious: Yes (Hospitalization)
  Sender: FDA-Public Use
  Company Number: 2005JP001088

PATIENT
  Age: 13 Year
  Sex: Male

DRUGS (8)
  1. PROTOPIC [Suspect]
     Dosage: 0.03%, TOPICAL
     Route: 061
  2. PALDES         (CLOBETASONE BUTYRATE) OINTMENT [Concomitant]
  3. VOALLA       (DEXAMETHASONE VALERATE) OINTMENT [Concomitant]
  4. WHITE PETROLEUM (PETROLEUM) OINTMENT [Concomitant]
  5. HIRUDOID                                      (HEPARINOID) [Concomitant]
  6. ALLEGRA (FEXOFENADINEHYDROCHLORIDE) TABLET [Concomitant]
  7. LIDOMEX (PREDNISOLONE VALEROACETATE) CREAM [Concomitant]
  8. DIFLUPREDNATE (DIFLUPREDNATE) CREAM [Concomitant]

REACTIONS (2)
  - HEADACHE [None]
  - KAPOSI'S VARICELLIFORM ERUPTION [None]
